FAERS Safety Report 26034708 (Version 1)
Quarter: 2025Q4

REPORT INFORMATION
  Report Type: Report from Study
  Country: EU (occurrence: EU)
  Receive Date: 20251112
  Receipt Date: 20251112
  Transmission Date: 20260117
  Serious: Yes (Hospitalization)
  Sender: ABBVIE
  Company Number: EU-ABBVIE-6542324

PATIENT
  Age: 50 Year
  Sex: Male

DRUGS (1)
  1. FOSCARBIDOPA\FOSLEVODOPA [Suspect]
     Active Substance: FOSCARBIDOPA\FOSLEVODOPA
     Indication: Parkinson^s disease
     Dosage: EXTRA DOSE:0.30, LOW RATE:0.43, HIGH RATE:0.59, BASE RATE:0.56, LOADING DOSE:0.6.
     Route: 058
     Dates: start: 20241216

REACTIONS (1)
  - Psychiatric care [Unknown]
